FAERS Safety Report 7158077-9 (Version None)
Quarter: 2010Q4

REPORT INFORMATION
  Report Type: 
  Country: None (occurrence: None)
  Receive Date: 20101214
  Receipt Date: 20100406
  Transmission Date: 20110411
  Serious: No
  Sender: FDA-Public Use
  Company Number: US-ASTRAZENECA-2010SE15069

PATIENT
  Age: 59 Year
  Sex: Female
  Weight: 70.8 kg

DRUGS (4)
  1. CRESTOR [Suspect]
     Indication: BLOOD CHOLESTEROL INCREASED
     Route: 048
     Dates: start: 20090901, end: 20100101
  2. ZOLOFT [Concomitant]
  3. PAXIL [Concomitant]
  4. PEXEVA [Concomitant]

REACTIONS (9)
  - ARTHRALGIA [None]
  - BALANCE DISORDER [None]
  - DRY MOUTH [None]
  - FALL [None]
  - HEADACHE [None]
  - LIP SWELLING [None]
  - MUSCULOSKELETAL STIFFNESS [None]
  - MYALGIA [None]
  - PAIN [None]
